FAERS Safety Report 14867558 (Version 1)
Quarter: 2018Q2

REPORT INFORMATION
  Report Type: Report from Study
  Country: GB (occurrence: GB)
  Receive Date: 20180508
  Receipt Date: 20180508
  Transmission Date: 20180711
  Serious: Yes (Hospitalization)
  Sender: FDA-Public Use
  Company Number: PHHY2018GB075150

PATIENT
  Sex: Female

DRUGS (1)
  1. COSENTYX [Suspect]
     Active Substance: SECUKINUMAB
     Indication: SPONDYLOARTHROPATHY
     Dosage: 150 MG, QW4
     Route: 058
     Dates: start: 20171219

REACTIONS (3)
  - Malaise [Unknown]
  - Sepsis [Unknown]
  - Product use in unapproved indication [Unknown]
